FAERS Safety Report 7744799 (Version 4)
Quarter: 2013Q1

REPORT INFORMATION
  Report Type: Report from Study
  Country: US (occurrence: US)
  Receive Date: 20101230
  Receipt Date: 20130213
  Transmission Date: 20140127
  Serious: Yes (Hospitalization, Other)
  Sender: FDA-Public Use
  Company Number: US-ABBOTT-10P-163-0693234-00

PATIENT
  Age: 55 None
  Sex: Male
  Weight: 95.79 kg

DRUGS (39)
  1. HUMIRA 40 MG/0.8 ML PEN [Suspect]
     Indication: RHEUMATOID ARTHRITIS
     Route: 058
     Dates: start: 2009, end: 201301
  2. HUMIRA 40 MG/0.8 ML PEN [Suspect]
     Indication: CROHN^S DISEASE
     Route: 058
     Dates: start: 201301
  3. ACETAMINOPHEN W/HYDROCODONE [Concomitant]
     Indication: ARTHRALGIA
     Dosage: 7.5/500 MG TABS, 1-2 Q 4-6 HRS PRN
     Route: 048
  4. OXYCODONE HCL [Concomitant]
     Indication: BREAKTHROUGH PAIN
     Dosage: 1 QD, PRN
     Route: 048
  5. ASACOL [Concomitant]
     Indication: CROHN^S DISEASE
     Dosage: 400 MG, 2 BID
     Route: 048
  6. PREVACID [Concomitant]
     Indication: GASTROOESOPHAGEAL REFLUX DISEASE
     Route: 048
     Dates: start: 1999
  7. PREVACID [Concomitant]
     Indication: HIATUS HERNIA
  8. BENTYL [Concomitant]
     Indication: CROHN^S DISEASE
     Route: 048
  9. BENTYL [Concomitant]
     Indication: IRRITABLE BOWEL SYNDROME
  10. URSODIOL [Concomitant]
     Indication: CROHN^S DISEASE
     Dosage: 300 MG, 2 QD
     Route: 048
  11. URSODIOL [Concomitant]
     Indication: PROPHYLAXIS
  12. URSODIOL [Concomitant]
     Indication: LIVER DISORDER
  13. LOPID [Concomitant]
     Indication: BLOOD TRIGLYCERIDES INCREASED
     Route: 048
  14. LOPID [Concomitant]
     Indication: BLOOD CHOLESTEROL INCREASED
  15. ZYRTEC [Concomitant]
     Indication: HYPERSENSITIVITY
     Route: 048
     Dates: start: 2004
  16. ZYRTEC [Concomitant]
     Indication: SEASONAL ALLERGY
  17. PAXIL [Concomitant]
     Indication: PRODUCT USED FOR UNKNOWN INDICATION
     Route: 048
  18. PAXIL [Concomitant]
     Dosage: 40MG DAILY
  19. XANAX XR [Concomitant]
     Indication: DEPRESSION
     Route: 048
  20. XANAX XR [Concomitant]
     Indication: IRRITABLE BOWEL SYNDROME
  21. MULTIVITAMIN [Concomitant]
     Indication: PRODUCT USED FOR UNKNOWN INDICATION
     Route: 048
  22. TESTOSTERONE CYPIONATE [Concomitant]
     Indication: BLOOD TESTOSTERONE DECREASED
     Dosage: OIL, 1 IN 2 WEEKS
  23. TESTOSTERONE CYPIONATE [Concomitant]
     Dosage: 200MG EVERY TWO WEEKS
  24. CHOLECALCIFEROL [Concomitant]
     Indication: PRODUCT USED FOR UNKNOWN INDICATION
     Route: 048
  25. VITAMIN E [Concomitant]
     Indication: LIVER DISORDER
     Route: 048
  26. VITAMIN E [Concomitant]
     Dosage: 400 UNITS 4X DAILY, 2010
  27. FOLIC ACID [Concomitant]
     Indication: PRODUCT USED FOR UNKNOWN INDICATION
     Route: 048
  28. PROPRANOLOL [Concomitant]
     Indication: PRODUCT USED FOR UNKNOWN INDICATION
     Dosage: 2 TABS TWICE A DAY, PRN
     Route: 048
  29. FOLATE [Concomitant]
     Indication: CROHN^S DISEASE
  30. HYDROCODONE [Concomitant]
     Indication: PAIN
  31. ACIPHEX [Concomitant]
     Indication: GASTROOESOPHAGEAL REFLUX DISEASE
  32. BENTYL [Concomitant]
     Indication: ANTIDEPRESSANT THERAPY
  33. XANAX [Concomitant]
     Indication: POST-TRAUMATIC STRESS DISORDER
  34. XANAX [Concomitant]
     Indication: PANIC DISORDER
  35. AMBIEN [Concomitant]
     Indication: INSOMNIA
  36. ZIRTEC [Concomitant]
     Indication: ALLERGIC SINUSITIS
  37. VITAMIN D [Concomitant]
     Indication: VITAMIN D DECREASED
  38. CALCIUM/MAG/ZINC [Concomitant]
     Indication: OSTEOPENIA
  39. TESTOSTERON INJECTIONS [Concomitant]
     Indication: BLOOD TESTOSTERONE DECREASED

REACTIONS (40)
  - Renal cyst [Recovered/Resolved]
  - Intraocular melanoma [Recovering/Resolving]
  - Visual acuity reduced [Not Recovered/Not Resolved]
  - Back pain [Recovered/Resolved]
  - Renal cyst haemorrhage [Recovered/Resolved]
  - Blindness unilateral [Recovering/Resolving]
  - Haematochezia [Recovered/Resolved]
  - Arthralgia [Unknown]
  - Retinal detachment [Unknown]
  - Musculoskeletal pain [Not Recovered/Not Resolved]
  - Laboratory test abnormal [Not Recovered/Not Resolved]
  - Drug effect decreased [Recovered/Resolved]
  - Bursitis [Not Recovered/Not Resolved]
  - Arthralgia [Not Recovered/Not Resolved]
  - Osteopenia [Unknown]
  - Malaise [Not Recovered/Not Resolved]
  - Inappropriate schedule of drug administration [Unknown]
  - Frequent bowel movements [Not Recovered/Not Resolved]
  - Paraesthesia [Unknown]
  - Injection site haemorrhage [Recovered/Resolved]
  - Vitamin D deficiency [Unknown]
  - Crohn^s disease [Recovered/Resolved]
  - Rheumatoid arthritis [Recovered/Resolved]
  - Arthralgia [Recovered/Resolved]
  - Arthralgia [Not Recovered/Not Resolved]
  - Joint stiffness [Not Recovered/Not Resolved]
  - Fatigue [Not Recovered/Not Resolved]
  - Weight decreased [Not Recovered/Not Resolved]
  - Scar [Unknown]
  - Malignant melanoma [Unknown]
  - Renal cyst [Recovered/Resolved]
  - Antiphospholipid antibodies positive [Unknown]
  - Scleroderma [Unknown]
  - Muscular weakness [Not Recovered/Not Resolved]
  - Skin lesion [Not Recovered/Not Resolved]
  - Intervertebral disc degeneration [Unknown]
  - Back pain [Not Recovered/Not Resolved]
  - Gastroenteritis norovirus [Recovering/Resolving]
  - Drug ineffective [Not Recovered/Not Resolved]
  - Renal haemorrhage [Recovered/Resolved]
